FAERS Safety Report 13587281 (Version 1)
Quarter: 2017Q2

REPORT INFORMATION
  Report Type: Report from Study
  Country: US (occurrence: BR)
  Receive Date: 20170526
  Receipt Date: 20170526
  Transmission Date: 20170830
  Serious: Yes (Other)
  Sender: FDA-Public Use
  Company Number: US-SUNOVION-2017SUN002281

PATIENT
  Sex: Male
  Weight: 74 kg

DRUGS (3)
  1. INDACATEROL AND GLYCOPYRROLATE [Suspect]
     Active Substance: GLYCOPYRROLATE\INDACATEROL MALEATE
     Indication: DYSPNOEA
  2. ACETYLCYSTEINE. [Concomitant]
     Active Substance: ACETYLCYSTEINE
  3. INDACATEROL AND GLYCOPYRROLATE [Suspect]
     Active Substance: GLYCOPYRROLATE\INDACATEROL MALEATE
     Indication: PNEUMONIA
     Dosage: 1 DF (50/110 UG), QD
     Route: 055
     Dates: start: 20170427

REACTIONS (7)
  - Limb discomfort [Unknown]
  - Epistaxis [Unknown]
  - Pharyngeal haemorrhage [Unknown]
  - Headache [Unknown]
  - Dizziness [Recovering/Resolving]
  - Discomfort [Unknown]
  - Product use in unapproved indication [Unknown]
